FAERS Safety Report 7450393-6 (Version None)
Quarter: 2011Q2

REPORT INFORMATION
  Report Type: 
  Country: None (occurrence: None)
  Receive Date: 20110429
  Receipt Date: 20110429
  Transmission Date: 20111010
  Serious: Yes (Other)
  Sender: FDA-Public Use
  Company Number: None

PATIENT
  Sex: Female
  Weight: 81.6475 kg

DRUGS (1)
  1. BOTOX [Suspect]
     Dates: start: 20110415, end: 20110415

REACTIONS (7)
  - NECK PAIN [None]
  - MUSCLE FATIGUE [None]
  - DYSKINESIA [None]
  - IMPAIRED WORK ABILITY [None]
  - DYSPHAGIA [None]
  - MUSCULOSKELETAL PAIN [None]
  - FATIGUE [None]
